FAERS Safety Report 8121936-4 (Version None)
Quarter: 2012Q1

REPORT INFORMATION
  Report Type: 
  Country: None (occurrence: None)
  Receive Date: 20120208
  Receipt Date: 20120201
  Transmission Date: 20120608
  Serious: Yes (Other)
  Sender: FDA-Public Use
  Company Number: BE-ROCHE-1036141

PATIENT
  Sex: Female
  Weight: 48 kg

DRUGS (5)
  1. NAPROXEN [Concomitant]
     Indication: JUVENILE ARTHRITIS
     Route: 048
  2. ACTEMRA [Suspect]
     Dates: start: 20111122, end: 20120201
  3. METHYLPREDNISOLONE [Concomitant]
     Indication: JUVENILE ARTHRITIS
     Route: 048
  4. ACTEMRA [Suspect]
     Indication: JUVENILE ARTHRITIS
     Dates: start: 20110909
  5. METHOTREXATE [Concomitant]
     Indication: JUVENILE ARTHRITIS
     Route: 048

REACTIONS (1)
  - DERMATITIS ALLERGIC [None]
